FAERS Safety Report 7241902-0 (Version None)
Quarter: 2011Q1

REPORT INFORMATION
  Report Type: 
  Country: None (occurrence: None)
  Receive Date: 20110124
  Receipt Date: 20110124
  Transmission Date: 20110831
  Serious: Yes (Other)
  Sender: FDA-Public Use
  Company Number: IT-SANOFI-AVENTIS-2010SA024430

PATIENT
  Age: 69 Year
  Sex: Male

DRUGS (3)
  1. TAXOTERE [Suspect]
     Route: 041
     Dates: start: 20100216, end: 20100216
  2. TAXOTERE [Suspect]
     Indication: PROSTATE CANCER METASTATIC
     Route: 041
     Dates: start: 20091211, end: 20091211
  3. DELTACORTENE [Concomitant]
     Indication: PROSTATE CANCER METASTATIC
     Route: 048

REACTIONS (3)
  - DIARRHOEA [None]
  - RECTAL HAEMORRHAGE [None]
  - PROCTITIS ULCERATIVE [None]
